FAERS Safety Report 8329409-0 (Version None)
Quarter: 2012Q2

REPORT INFORMATION
  Report Type: 
  Country: None (occurrence: None)
  Receive Date: 20120502
  Receipt Date: 20120427
  Transmission Date: 20120825
  Serious: Yes (Other)
  Sender: FDA-Public Use
  Company Number: VE-PFIZER INC-2012100171

PATIENT
  Age: 74 Year
  Sex: Female

DRUGS (1)
  1. NORVASC [Suspect]
     Dosage: 5 MG, 1X/DAY
     Route: 048
     Dates: start: 20110401

REACTIONS (3)
  - PROLAPSE REPAIR [None]
  - INGUINAL HERNIA [None]
  - UMBILICAL HERNIA [None]
